FAERS Safety Report 5340615-X (Version None)
Quarter: 2007Q2

REPORT INFORMATION
  Report Type: 
  Country: None (occurrence: None)
  Receive Date: 20070405
  Receipt Date: 20070115
  Transmission Date: 20071010
  Serious: No
  Sender: FDA-Public Use
  Company Number: US200701002075

PATIENT
  Age: 55 Year
  Sex: Female

DRUGS (3)
  1. CYMBALTA [Suspect]
     Indication: FIBROMYALGIA
     Dosage: SEE IMAGE
     Route: 048
     Dates: end: 20061201
  2. CYMBALTA [Suspect]
     Indication: FIBROMYALGIA
     Dosage: SEE IMAGE
     Route: 048
     Dates: start: 20061001
  3. OXYCONTIN [Concomitant]

REACTIONS (3)
  - EMOTIONAL DISORDER [None]
  - MOOD SWINGS [None]
  - NIGHTMARE [None]
